FAERS Safety Report 8591200-8 (Version None)
Quarter: 2012Q3

REPORT INFORMATION
  Report Type: 
  Country: None (occurrence: None)
  Receive Date: 20120813
  Receipt Date: 20120718
  Transmission Date: 20120928
  Serious: No
  Sender: FDA-Public Use
  Company Number: US-BAYER-2012-026425

PATIENT
  Age: 42 Year
  Sex: Female

DRUGS (6)
  1. VENTAVIS [Suspect]
     Dosage: UNK
     Route: 055
  2. TRACLEER [Suspect]
     Dosage: UNK
     Route: 048
  3. TRACLEER [Suspect]
     Indication: PULMONARY ARTERIAL HYPERTENSION
     Dosage: UNK
     Route: 048
     Dates: start: 20031022
  4. VENTAVIS [Suspect]
     Indication: PULMONARY ARTERIAL HYPERTENSION
     Dosage: UNK
     Route: 055
     Dates: start: 20080727
  5. ADCIRCA [Concomitant]
  6. ANTITHROMBOTIC AGENTS [Concomitant]

REACTIONS (2)
  - ERYTHEMA [None]
  - HEADACHE [None]
